FAERS Safety Report 24076803 (Version 1)
Quarter: 2024Q3

REPORT INFORMATION
  Report Type: Spontaneous
  Country: DE (occurrence: None)
  Receive Date: 20240711
  Receipt Date: 20240711
  Transmission Date: 20241017
  Serious: Yes (Hospitalization, Disabling)
  Sender: INFORLIFE
  Company Number: DE-INFO-20240193

PATIENT
  Age: 60 Year
  Sex: Female

DRUGS (15)
  1. INSULIN NOS [Concomitant]
     Active Substance: INSULIN NOS
     Indication: Type 1 diabetes mellitus
     Dosage: ()
     Route: 058
  2. SUFENTANIL [Concomitant]
     Active Substance: SUFENTANIL
     Indication: Induction of anaesthesia
  3. CANDESARTAN [Concomitant]
     Active Substance: CANDESARTAN
  4. LIDOCAINE [Suspect]
     Active Substance: LIDOCAINE
     Indication: Catheter management
     Dosage: THE PUNCTURE WAS PERFORMED IN THE THORACIC INTERSPINAL SPACE BETWEEN THE VERTEBRAL PROCESSES 7 AN...
     Route: 008
  5. ATORVASTATIN [Concomitant]
     Active Substance: ATORVASTATIN
  6. LEVOTHYROXINE [Concomitant]
     Active Substance: LEVOTHYROXINE\LEVOTHYROXINE SODIUM
  7. ROPIVACAINE [Suspect]
     Active Substance: ROPIVACAINE
     Indication: Epidural anaesthesia
     Dosage: LOADING DOSE ; IN TOTAL
     Route: 008
  8. ROCURONIUM [Concomitant]
     Active Substance: ROCURONIUM BROMIDE
     Indication: General anaesthesia
  9. ROPIVACAINE [Suspect]
     Active Substance: ROPIVACAINE
     Indication: Epidural anaesthesia
     Dosage: AT FLOW RATES OF 8 AND 10 ML/HOUR
     Route: 008
  10. ROPIVACAINE [Suspect]
     Active Substance: ROPIVACAINE
     Indication: Epidural anaesthesia
     Dosage: AT FLOW RATES OF 8 AND 10 ML/HOUR
     Route: 008
  11. PROPOFOL [Concomitant]
     Active Substance: PROPOFOL
     Indication: Induction of anaesthesia
  12. PANTOPRAZOLE [Concomitant]
     Active Substance: PANTOPRAZOLE
  13. SPIRONOLACTONE [Concomitant]
     Active Substance: SPIRONOLACTONE
     Dosage: 25 MG THREE TIMES A WEEK
  14. NOREPINEPHRINE [Concomitant]
     Active Substance: NOREPINEPHRINE\NOREPINEPHRINE BITARTRATE
     Dosage: UP TO 0.06 UG/KG/MIN
  15. CHOLECALCIFEROL [Concomitant]
     Active Substance: CHOLECALCIFEROL

REACTIONS (1)
  - Spinal cord injury [Recovering/Resolving]
